FAERS Safety Report 6689157-X (Version None)
Quarter: 2010Q2

REPORT INFORMATION
  Report Type: 
  Country: None (occurrence: None)
  Receive Date: 20100420
  Receipt Date: 20100406
  Transmission Date: 20101027
  Serious: Yes (Other)
  Sender: FDA-Public Use
  Company Number: DE-GENENTECH-300622

PATIENT

DRUGS (3)
  1. LUCENTIS [Suspect]
     Indication: DRUG USE FOR UNKNOWN INDICATION
     Dosage: UNK
     Route: 031
  2. LUCENTIS [Suspect]
     Dosage: UNK
     Route: 031
     Dates: start: 20090928
  3. LUCENTIS [Suspect]
     Dosage: UNK
     Route: 031
     Dates: start: 20100215

REACTIONS (1)
  - VISUAL ACUITY REDUCED [None]
